FAERS Safety Report 19436413 (Version 1)
Quarter: 2021Q2

REPORT INFORMATION
  Report Type: Report from Study
  Country: IT (occurrence: IT)
  Receive Date: 20210618
  Receipt Date: 20210618
  Transmission Date: 20210717
  Serious: Yes (Other)
  Sender: FDA-Public Use
  Company Number: IT-BAYER-2021-157539

PATIENT
  Age: 68 Year
  Sex: Male

DRUGS (5)
  1. METHYLPREDNISOLONE. [Suspect]
     Active Substance: METHYLPREDNISOLONE
  2. RITONAVIR. [Suspect]
     Active Substance: RITONAVIR
  3. ENOXAPARIN [Suspect]
     Active Substance: ENOXAPARIN
  4. CHLOROQUINE. [Suspect]
     Active Substance: CHLOROQUINE
     Indication: COVID-19
  5. LOPINAVIR [Suspect]
     Active Substance: LOPINAVIR

REACTIONS (3)
  - Off label use [None]
  - Hepatic dysplasia [None]
  - Drug-induced liver injury [None]
